FAERS Safety Report 10198255 (Version 1)
Quarter: 2014Q2

REPORT INFORMATION
  Report Type: Spontaneous
  Country: US (occurrence: US)
  Receive Date: 20140527
  Receipt Date: 20140527
  Transmission Date: 20141212
  Serious: No
  Sender: FDA-Public Use
  Company Number: US-NOVEN-13US007603

PATIENT
  Sex: 0

DRUGS (1)
  1. DAYTRANA [Suspect]
     Indication: PRODUCT USED FOR UNKNOWN INDICATION
     Dosage: 10 MG, ONE PATCH QD
     Route: 062
     Dates: start: 201308

REACTIONS (3)
  - Tearfulness [Not Recovered/Not Resolved]
  - Increased appetite [Not Recovered/Not Resolved]
  - Affect lability [Not Recovered/Not Resolved]
